FAERS Safety Report 8133405-6 (Version None)
Quarter: 2012Q1

REPORT INFORMATION
  Report Type: 
  Country: None (occurrence: None)
  Receive Date: 20120213
  Receipt Date: 20120209
  Transmission Date: 20120608
  Serious: Yes (Death)
  Sender: FDA-Public Use
  Company Number: PHHY2012CO011657

PATIENT
  Age: 75 Year
  Sex: Male

DRUGS (3)
  1. FLUOROURACIL [Suspect]
     Indication: GASTRIC CANCER
     Dosage: 600 MG, UNK
     Route: 042
     Dates: start: 20111019, end: 20120117
  2. ONDANSETRON [Concomitant]
     Dosage: UNK UKN, UNK
  3. LEUCOVORIN CALCIUM [Concomitant]
     Dosage: UNK UKN, UNK

REACTIONS (3)
  - APHAGIA [None]
  - MUCOSAL INFLAMMATION [None]
  - GENERAL PHYSICAL HEALTH DETERIORATION [None]
